FAERS Safety Report 4466333-8 (Version None)
Quarter: 2004Q4

REPORT INFORMATION
  Report Type: 
  Country: None (occurrence: None)
  Receive Date: 20041005
  Receipt Date: 20040922
  Transmission Date: 20050328
  Serious: Yes (Hospitalization)
  Sender: FDA-Public Use
  Company Number: FR-GLAXOSMITHKLINE-B0345929A

PATIENT
  Age: 65 Year
  Sex: Male

DRUGS (8)
  1. DEROXAT [Suspect]
     Dosage: 20MG PER DAY
     Route: 048
  2. XANAX [Suspect]
     Dosage: 1.5MG PER DAY
     Route: 048
  3. CETORNAN [Suspect]
     Dosage: 1UNIT PER DAY
     Route: 048
  4. LOVENOX [Suspect]
     Route: 058
  5. SOPHIDONE [Suspect]
     Dosage: 8MG PER DAY
     Route: 048
     Dates: start: 20040601
  6. MIXTARD 20 [Suspect]
     Route: 058
  7. NAVELBINE [Concomitant]
     Indication: SQUAMOUS CELL CARCINOMA
  8. RADIOTHERAPY [Concomitant]
     Indication: HEPATIC NEOPLASM MALIGNANT

REACTIONS (8)
  - ANOREXIA [None]
  - CONFUSIONAL STATE [None]
  - DEHYDRATION [None]
  - DISORIENTATION [None]
  - GENERAL PHYSICAL HEALTH DETERIORATION [None]
  - NEURALGIA [None]
  - RENAL FAILURE [None]
  - VOMITING [None]
